FAERS Safety Report 9470542 (Version 1)
Quarter: 2013Q3

REPORT INFORMATION
  Report Type: Spontaneous
  Country: US (occurrence: None)
  Receive Date: 20130820
  Receipt Date: 20130820
  Transmission Date: 20140515
  Serious: Yes (Disabling, Other)
  Sender: FDA-Public Use
  Company Number: None

PATIENT
  Sex: Male
  Weight: 97.07 kg

DRUGS (6)
  1. WELLBUTRIN XL [Suspect]
     Indication: DEPRESSION
     Dosage: 1 PILL BID BY MOUTH P.O.
     Route: 048
     Dates: start: 20040310, end: 20040612
  2. COLACE [Concomitant]
  3. ZANTAC [Concomitant]
  4. PRILOSEC [Concomitant]
  5. VENTOLIN [Concomitant]
  6. QVAR [Concomitant]

REACTIONS (1)
  - Semen analysis abnormal [None]
